FAERS Safety Report 9300883 (Version 1)
Quarter: 2013Q2

REPORT INFORMATION
  Report Type: Report from Study
  Country: ID (occurrence: ID)
  Receive Date: 20130521
  Receipt Date: 20130521
  Transmission Date: 20140414
  Serious: Yes (Other)
  Sender: FDA-Public Use
  Company Number: ID-ROCHE-1226901

PATIENT
  Age: 43 Year
  Sex: Female
  Weight: 46 kg

DRUGS (3)
  1. HERCEPTIN [Suspect]
     Indication: BREAST CANCER METASTATIC
     Route: 041
     Dates: start: 20120103
  2. DOXORUBICIN [Concomitant]
     Indication: BREAST CANCER METASTATIC
  3. FLURACEDYL [Concomitant]
     Indication: BREAST CANCER METASTATIC

REACTIONS (1)
  - General physical health deterioration [Unknown]
